FAERS Safety Report 17106620 (Version 2)
Quarter: 2019Q4

REPORT INFORMATION
  Report Type: Spontaneous
  Country: BR (occurrence: BR)
  Receive Date: 20191203
  Receipt Date: 20191209
  Transmission Date: 20200122
  Serious: Yes (Hospitalization, Other)
  Sender: FDA-Public Use
  Company Number: BR-TAKEDA-2019TUS068255

PATIENT
  Age: 47 Year
  Sex: Female

DRUGS (1)
  1. ICLUSIG [Suspect]
     Active Substance: PONATINIB
     Indication: CHRONIC MYELOID LEUKAEMIA
     Dosage: 45 MILLIGRAM
     Route: 065
     Dates: start: 20191121

REACTIONS (3)
  - Renal impairment [Recovering/Resolving]
  - Wrong technique in product usage process [Unknown]
  - Pulmonary sepsis [Recovering/Resolving]

NARRATIVE: CASE EVENT DATE: 20191123
